FAERS Safety Report 4939960-9 (Version None)
Quarter: 2006Q1

REPORT INFORMATION
  Report Type: 
  Country: None (occurrence: None)
  Receive Date: 20060307
  Receipt Date: 20060222
  Transmission Date: 20060701
  Serious: Yes (Other)
  Sender: FDA-Public Use
  Company Number: SUS1-2006-00091

PATIENT
  Age: 52 Year
  Sex: Male

DRUGS (1)
  1. PENTASA [Suspect]
     Indication: COLITIS ULCERATIVE
     Dosage: 1000 MG, 2X/DAY:  BID, ORAL
     Route: 048
     Dates: start: 20050201, end: 20051101

REACTIONS (13)
  - ANGIONEUROTIC OEDEMA [None]
  - AUTOIMMUNE DISORDER [None]
  - CHEST PAIN [None]
  - DERMATITIS ALLERGIC [None]
  - DYSPHAGIA [None]
  - EOSINOPHIL COUNT INCREASED [None]
  - ERUCTATION [None]
  - FATIGUE [None]
  - LOCAL SWELLING [None]
  - MALAISE [None]
  - PAIN [None]
  - SWELLING FACE [None]
  - WEIGHT DECREASED [None]
